FAERS Safety Report 13511290 (Version 16)
Quarter: 2019Q1

REPORT INFORMATION
  Report Type: Report from Study
  Country: US (occurrence: US)
  Receive Date: 20170503
  Receipt Date: 20190329
  Transmission Date: 20190417
  Serious: Yes (Hospitalization, Other)
  Sender: FDA-Public Use
  Company Number: US-JAZZ-2017-US-005219

PATIENT
  Sex: Female

DRUGS (37)
  1. XYREM [Suspect]
     Active Substance: SODIUM OXYBATE
     Indication: CATAPLEXY
     Dosage: DOSE ADJUSTMENT
     Route: 048
     Dates: start: 201308, end: 201312
  2. XANAX [Suspect]
     Active Substance: ALPRAZOLAM
     Indication: PRODUCT USED FOR UNKNOWN INDICATION
  3. MATRICARIA RECUTITA [Concomitant]
     Active Substance: MATRICARIA RECUTITA
  4. CYMBALTA [Concomitant]
     Active Substance: DULOXETINE HYDROCHLORIDE
  5. LIDOCAINE. [Concomitant]
     Active Substance: LIDOCAINE
  6. XYREM [Suspect]
     Active Substance: SODIUM OXYBATE
     Indication: NARCOLEPSY
     Dosage: 2.25 G, BID
     Route: 048
     Dates: start: 201307, end: 201308
  7. CURCUMIN [Concomitant]
     Active Substance: CURCUMIN
  8. MIRALAX [Concomitant]
     Active Substance: POLYETHYLENE GLYCOL 3350
  9. NORCO [Concomitant]
     Active Substance: ACETAMINOPHEN\HYDROCODONE BITARTRATE
  10. TRAMADOL HCL [Concomitant]
     Active Substance: TRAMADOL HYDROCHLORIDE
  11. LORAZEPAM. [Concomitant]
     Active Substance: LORAZEPAM
  12. DESLORATADINE. [Concomitant]
     Active Substance: DESLORATADINE
  13. OXYCODONE AND ACETAMINOPHEN [Concomitant]
     Active Substance: ACETAMINOPHEN\OXYCODONE HYDROCHLORIDE
  14. CALCIUM CITRATE [Concomitant]
     Active Substance: CALCIUM CITRATE
  15. CYCLOBENZAPRINE. [Concomitant]
     Active Substance: CYCLOBENZAPRINE
  16. PROZAC [Suspect]
     Active Substance: FLUOXETINE HYDROCHLORIDE
     Indication: PRODUCT USED FOR UNKNOWN INDICATION
  17. IBUPROFEN. [Concomitant]
     Active Substance: IBUPROFEN
  18. DOCUSATE [Suspect]
     Active Substance: DOCUSATE
     Indication: PRODUCT USED FOR UNKNOWN INDICATION
  19. WELLBUTRIN [Suspect]
     Active Substance: BUPROPION HYDROCHLORIDE
     Indication: PRODUCT USED FOR UNKNOWN INDICATION
  20. GABAPENTIN. [Concomitant]
     Active Substance: GABAPENTIN
  21. SODIUM CHLORIDE. [Concomitant]
     Active Substance: SODIUM CHLORIDE
  22. MOMETASONE FUROATE. [Concomitant]
     Active Substance: MOMETASONE FUROATE
  23. OXYCODONE HYDROCHLORIDE. [Suspect]
     Active Substance: OXYCODONE HYDROCHLORIDE
     Indication: PRODUCT USED FOR UNKNOWN INDICATION
  24. IRON [Concomitant]
     Active Substance: IRON
  25. COLACE [Concomitant]
     Active Substance: DOCUSATE SODIUM
  26. XYREM [Suspect]
     Active Substance: SODIUM OXYBATE
     Dosage: 4.5 G, BID
     Route: 048
     Dates: start: 201612
  27. LYRICA [Concomitant]
     Active Substance: PREGABALIN
  28. GLICLAZIDE [Concomitant]
     Active Substance: GLICLAZIDE
  29. IMIPRAMINE HCL [Concomitant]
     Active Substance: IMIPRAMINE HYDROCHLORIDE
  30. IPRATROPIUM BR [Concomitant]
  31. MIRENA [Concomitant]
     Active Substance: LEVONORGESTREL
  32. OMEPRAZOLE MAGNESIUM. [Concomitant]
     Active Substance: OMEPRAZOLE MAGNESIUM
  33. DEXAMFETAMINE [Concomitant]
     Active Substance: DEXTROAMPHETAMINE
  34. AZITHROMYCIN ANHYDROUS. [Concomitant]
     Active Substance: AZITHROMYCIN ANHYDROUS
  35. CHONDROITIN SULFATE W/GLUCOSAMINE SULFATE [Concomitant]
  36. BUSPIRONE HCL [Concomitant]
     Active Substance: BUSPIRONE HYDROCHLORIDE
  37. CLARITHROMYCIN. [Concomitant]
     Active Substance: CLARITHROMYCIN

REACTIONS (20)
  - Dental restoration failure [Not Recovered/Not Resolved]
  - Eructation [Unknown]
  - Tooth fracture [Not Recovered/Not Resolved]
  - Bipolar I disorder [Unknown]
  - Injury [Unknown]
  - Dysuria [Unknown]
  - Blood urine present [Unknown]
  - Tongue biting [Unknown]
  - Flatulence [Unknown]
  - Nightmare [Not Recovered/Not Resolved]
  - Dizziness [Unknown]
  - Drug ineffective [Unknown]
  - Bruxism [Unknown]
  - Hallucination [Unknown]
  - Anxiety [Not Recovered/Not Resolved]
  - Victim of abuse [Unknown]
  - Post-traumatic stress disorder [Not Recovered/Not Resolved]
  - Dehydration [Not Recovered/Not Resolved]
  - Feeling hot [Unknown]
  - Somnolence [Unknown]

NARRATIVE: CASE EVENT DATE: 2016
